FAERS Safety Report 6775736-8 (Version None)
Quarter: 2010Q2

REPORT INFORMATION
  Report Type: 
  Country: None (occurrence: None)
  Receive Date: 20100617
  Receipt Date: 20100608
  Transmission Date: 20101027
  Serious: Yes (Other)
  Sender: FDA-Public Use
  Company Number: BR-SANOFI-AVENTIS-200819452GDDC

PATIENT
  Sex: Female
  Weight: 64 kg

DRUGS (12)
  1. OPTIPEN [Suspect]
     Dates: start: 20080923, end: 20090917
  2. OPTIPEN [Suspect]
     Dates: start: 20040101, end: 20080922
  3. LANTUS [Suspect]
     Route: 058
     Dates: start: 20040101
  4. LANTUS [Suspect]
     Route: 058
     Dates: start: 20040101
  5. AUTOPEN 24 [Suspect]
     Dates: start: 20090918
  6. HUMALOG [Concomitant]
     Route: 058
     Dates: start: 20060101
  7. METFORMIN [Concomitant]
     Dosage: DOSE AS USED: 1 TAB AFTER MEALS DOSE UNIT: 500 MG
     Route: 048
  8. GALVUS [Concomitant]
     Route: 048
     Dates: start: 20080801
  9. PURAN T4 [Concomitant]
     Indication: THYROID DISORDER
     Dosage: DOSE UNIT: 50 UG
     Route: 048
  10. LOSARTAN POTASSIUM [Concomitant]
     Dosage: DOSE UNIT: 50 MG
     Route: 048
  11. HYGROTON [Concomitant]
     Dosage: DOSE UNIT: 12.5 MG
     Route: 048
  12. NOVORAPID [Concomitant]
     Dosage: DOSE AS USED: ACCORDING TO GLYCEMIA
     Route: 058

REACTIONS (13)
  - CATARACT [None]
  - COLD SWEAT [None]
  - DIZZINESS [None]
  - FEELING ABNORMAL [None]
  - HEART RATE INCREASED [None]
  - HYPERGLYCAEMIA [None]
  - HYPOGLYCAEMIA [None]
  - HYPOGLYCAEMIC UNCONSCIOUSNESS [None]
  - LOSS OF CONSCIOUSNESS [None]
  - PRODUCT QUALITY ISSUE [None]
  - SOMNOLENCE [None]
  - SYNCOPE [None]
  - VISUAL IMPAIRMENT [None]
